FAERS Safety Report 5473466-6 (Version None)
Quarter: 2007Q3

REPORT INFORMATION
  Report Type: 
  Country: None (occurrence: None)
  Receive Date: 20070828
  Receipt Date: 20070606
  Transmission Date: 20080115
  Serious: Yes (Other)
  Sender: FDA-Public Use
  Company Number: 2007047277

PATIENT
  Sex: Male

DRUGS (1)
  1. EXUBERA [Suspect]

REACTIONS (1)
  - BLOOD GLUCOSE DECREASED [None]
